FAERS Safety Report 23767535 (Version 2)
Quarter: 2024Q3

REPORT INFORMATION
  Report Type: Spontaneous
  Country: US (occurrence: US)
  Receive Date: 20240422
  Receipt Date: 20240716
  Transmission Date: 20241016
  Serious: No
  Sender: BIOVITRUM
  Company Number: US-BIOVITRUM-2024-US-002912

PATIENT
  Age: 43 Year
  Sex: Female

DRUGS (3)
  1. KINERET [Suspect]
     Active Substance: ANAKINRA
     Indication: Autoinflammatory disease
     Dosage: 100 MG, TWICE DAILY
     Route: 058
  2. KINERET [Suspect]
     Active Substance: ANAKINRA
     Indication: Familial mediterranean fever
     Dosage: 50 MG TWICE A DAY
     Dates: start: 20190103
  3. COLCHICINE [Concomitant]
     Active Substance: COLCHICINE
     Indication: Product used for unknown indication
     Dosage: DAILY

REACTIONS (8)
  - Off label use [Not Recovered/Not Resolved]
  - Joint stiffness [Unknown]
  - Peripheral swelling [Unknown]
  - Product dose omission issue [Unknown]
  - Adverse event [Unknown]
  - Gait disturbance [Unknown]
  - Condition aggravated [Unknown]
  - Product use issue [Unknown]

NARRATIVE: CASE EVENT DATE: 20190103
